FAERS Safety Report 21177636 (Version 1)
Quarter: 2022Q3

REPORT INFORMATION
  Report Type: Spontaneous
  Country: US (occurrence: US)
  Receive Date: 20220805
  Receipt Date: 20220805
  Transmission Date: 20221027
  Serious: No
  Sender: FDA-Public Use
  Company Number: US-BAYER-2022A105410

PATIENT
  Age: 6 Year
  Sex: Male

DRUGS (1)
  1. VITRAKVI [Suspect]
     Active Substance: LAROTRECTINIB
     Dosage: UNK
     Route: 048
     Dates: start: 20211224

REACTIONS (3)
  - Tic [None]
  - Eye movement disorder [None]
  - Muscle spasms [None]
